FAERS Safety Report 6835833-5 (Version None)
Quarter: 2010Q3

REPORT INFORMATION
  Report Type: 
  Country: None (occurrence: None)
  Receive Date: 20100713
  Receipt Date: 20100701
  Transmission Date: 20110219
  Serious: Yes (Congenital Anomaly)
  Sender: FDA-Public Use
  Company Number: TR-ELI_LILLY_AND_COMPANY-TR201007001639

PATIENT

DRUGS (4)
  1. HUMULIN R [Suspect]
     Dosage: 13 IU, DAILY (1/D) MORNING
     Route: 015
  2. HUMULIN R [Suspect]
     Dosage: 14 IU, DAILY (1/D) NOON
     Route: 015
  3. HUMULIN R [Suspect]
     Dosage: 12 IU, EACH EVENING
     Route: 015
  4. HUMULIN N [Suspect]
     Dosage: 16 U, DAILY (1/D) AT NIGHT
     Route: 015

REACTIONS (2)
  - DRUG EXPOSURE DURING PREGNANCY [None]
  - TRISOMY 21 [None]
